FAERS Safety Report 24687135 (Version 1)
Quarter: 2024Q4

REPORT INFORMATION
  Report Type: Spontaneous
  Country: US (occurrence: None)
  Receive Date: 20241130
  Receipt Date: 20241130
  Transmission Date: 20250115
  Serious: Yes (Life-Threatening, Hospitalization, Disabling)
  Sender: Public
  Company Number: None

PATIENT
  Sex: 0

DRUGS (1)
  1. FARXIGA [Suspect]
     Active Substance: DAPAGLIFLOZIN PROPANEDIOL
     Dosage: OTHER ROUTE : ORAL;?
     Route: 050
     Dates: end: 20240114

REACTIONS (1)
  - Necrotising fasciitis [None]

NARRATIVE: CASE EVENT DATE: 20240114
